FAERS Safety Report 15531550 (Version 1)
Quarter: 2018Q4

REPORT INFORMATION
  Report Type: Spontaneous
  Country: SE (occurrence: SE)
  Receive Date: 20181019
  Receipt Date: 20181019
  Transmission Date: 20190205
  Serious: Yes (Hospitalization, Other)
  Sender: FDA-Public Use
  Company Number: SE-009507513-0409SWE00011

PATIENT
  Age: 44 Year
  Sex: Male

DRUGS (12)
  1. HUMALOG [Concomitant]
     Active Substance: INSULIN LISPRO
     Dosage: UNK
  2. LIPITOR [Suspect]
     Active Substance: ATORVASTATIN CALCIUM
     Indication: HYPERLIPIDAEMIA
     Dosage: 20 MG, QD
     Route: 048
     Dates: start: 200308, end: 20040427
  3. LANTUS [Concomitant]
     Active Substance: INSULIN GLARGINE
  4. LOSARTAN POTASSIUM. [Concomitant]
     Active Substance: LOSARTAN POTASSIUM
     Route: 048
  5. INSULIN GLARGINE [Concomitant]
     Active Substance: INSULIN GLARGINE
     Route: 058
  6. SELOKEN [Concomitant]
     Active Substance: METOPROLOL
     Dosage: UNK
  7. INSULIN LISPRO [Concomitant]
     Active Substance: INSULIN LISPRO
     Route: 058
  8. EZETROL [Suspect]
     Active Substance: EZETIMIBE
     Indication: ILL-DEFINED DISORDER
     Dosage: 10 MG, QD
     Route: 048
     Dates: start: 20040420, end: 20040422
  9. COZAAR [Concomitant]
     Active Substance: LOSARTAN POTASSIUM
  10. LISINOPRIL. [Concomitant]
     Active Substance: LISINOPRIL
     Route: 048
  11. METOPROLOL SUCCINATE. [Concomitant]
     Active Substance: METOPROLOL SUCCINATE
     Route: 048
  12. ZESTRIL [Concomitant]
     Active Substance: LISINOPRIL
     Dosage: UNK

REACTIONS (6)
  - Type 1 diabetes mellitus [Unknown]
  - Rhabdomyolysis [Recovering/Resolving]
  - Troponin I increased [Not Recovered/Not Resolved]
  - Drug interaction [Unknown]
  - Renal failure [Unknown]
  - Blood creatine phosphokinase MB increased [Recovering/Resolving]

NARRATIVE: CASE EVENT DATE: 20040427
